FAERS Safety Report 20063719 (Version 3)
Quarter: 2021Q4

REPORT INFORMATION
  Report Type: Spontaneous
  Country: JP (occurrence: JP)
  Receive Date: 20211112
  Receipt Date: 20211223
  Transmission Date: 20220303
  Serious: Yes (Death, Other)
  Sender: FDA-Public Use
  Company Number: JP-SYMBIO-202100174

PATIENT
  Age: 81 Year
  Sex: Female
  Weight: 42 kg

DRUGS (8)
  1. BENDAMUSTINE HYDROCHLORIDE [Suspect]
     Active Substance: BENDAMUSTINE HYDROCHLORIDE
     Indication: Follicular lymphoma
     Dosage: (CYCLIC)
     Route: 041
     Dates: start: 20190524, end: 20190525
  2. BENDAMUSTINE HYDROCHLORIDE [Suspect]
     Active Substance: BENDAMUSTINE HYDROCHLORIDE
     Dosage: (CYCLIC)
     Route: 041
     Dates: start: 20190624, end: 20190625
  3. BENDAMUSTINE HYDROCHLORIDE [Suspect]
     Active Substance: BENDAMUSTINE HYDROCHLORIDE
     Dosage: (CYCLIC)
     Route: 041
     Dates: start: 20190722, end: 20190723
  4. RITUXAN [Concomitant]
     Active Substance: RITUXIMAB
     Indication: Follicular lymphoma
     Route: 041
     Dates: start: 20190530, end: 20190530
  5. RITUXAN [Concomitant]
     Active Substance: RITUXIMAB
     Route: 041
     Dates: start: 20190624, end: 20190624
  6. RITUXAN [Concomitant]
     Active Substance: RITUXIMAB
     Route: 041
     Dates: start: 20190722, end: 20190722
  7. SAXIZON [Concomitant]
     Active Substance: HYDROCORTISONE SODIUM SUCCINATE
     Indication: Follicular lymphoma
     Route: 041
     Dates: start: 20190530, end: 20210329
  8. POLARAMINE [Concomitant]
     Active Substance: DEXCHLORPHENIRAMINE MALEATE
     Indication: Follicular lymphoma
     Route: 041
     Dates: start: 20190530, end: 20210329

REACTIONS (4)
  - Interstitial lung disease [Fatal]
  - Neutrophil count decreased [Recovered/Resolved]
  - Off label use [Unknown]
  - Product use issue [Unknown]

NARRATIVE: CASE EVENT DATE: 20190524
